FAERS Safety Report 4512865-3 (Version None)
Quarter: 2004Q4

REPORT INFORMATION
  Report Type: 
  Country: None (occurrence: None)
  Receive Date: 20041130
  Receipt Date: 20040922
  Transmission Date: 20050328
  Serious: Yes (Death, Other)
  Sender: FDA-Public Use
  Company Number: FR-ABBOTT-04P-056-0274411-00

PATIENT
  Sex: Male

DRUGS (2)
  1. DEPAKINE CHRONO TABLETS [Suspect]
     Indication: CONVULSION PROPHYLAXIS
     Route: 048
     Dates: start: 20040730, end: 20040903
  2. DEPAKINE CHRONO TABLETS [Suspect]

REACTIONS (4)
  - HEPATOCELLULAR DAMAGE [None]
  - LYMPHADENOPATHY [None]
  - PANCREATIC NEOPLASM [None]
  - PANCREATITIS [None]
